FAERS Safety Report 9293284 (Version 2)
Quarter: 2013Q2

REPORT INFORMATION
  Report Type: Spontaneous
  Country: FR (occurrence: FR)
  Receive Date: 20130516
  Receipt Date: 20130611
  Transmission Date: 20140414
  Serious: Yes (Death)
  Sender: FDA-Public Use
  Company Number: FR-PFIZER INC-2013147438

PATIENT
  Age: 64 Year
  Sex: Male

DRUGS (25)
  1. EFFEXOR LP [Suspect]
     Indication: DEPRESSION
     Dosage: UNK
     Route: 048
     Dates: start: 20110902, end: 20130128
  2. TAHOR [Suspect]
     Indication: ISCHAEMIC HEART DISEASE PROPHYLAXIS
     Dosage: UNK
     Route: 048
     Dates: start: 20110710
  3. ESIDREX [Suspect]
     Indication: CARDIAC FAILURE
     Dosage: 25 MG, UNK
     Route: 048
     Dates: start: 20120430
  4. METFORMIN [Concomitant]
     Dosage: UNK
  5. PANTOPRAZOLE [Concomitant]
     Dosage: UNK
  6. ALFUZOSIN [Concomitant]
     Dosage: UNK
  7. LYRICA [Concomitant]
     Dosage: UNK
  8. LANTUS SOLOSTAR [Concomitant]
     Dosage: UNK
  9. LEVEMIR [Concomitant]
     Dosage: UNK
  10. NOVORAPID [Concomitant]
     Dosage: UNK
  11. LASILIX SPECIAL [Concomitant]
     Dosage: UNK
  12. PREVISCAN [Concomitant]
     Dosage: UNK
  13. TAREG [Concomitant]
     Dosage: UNK
  14. CARDENSIEL [Concomitant]
     Dosage: UNK
  15. IPRATROPIUM [Concomitant]
     Dosage: UNK
  16. BRICANYL [Concomitant]
     Dosage: UNK
  17. BUDESONIDE [Concomitant]
     Dosage: UNK
  18. SPIRIVA [Concomitant]
     Dosage: UNK
  19. QVAR [Concomitant]
     Dosage: UNK
  20. AIROMIR [Concomitant]
     Dosage: UNK
  21. AERIUS [Concomitant]
     Dosage: UNK
  22. ONBREZ [Concomitant]
     Dosage: UNK
  23. ALLOPURINOL [Concomitant]
     Dosage: UNK
  24. AMYCOR [Concomitant]
     Dosage: UNK
  25. MIANSERIN [Concomitant]
     Dosage: UNK

REACTIONS (1)
  - Cholestasis [Fatal]
